FAERS Safety Report 14255963 (Version 1)
Quarter: 2017Q4

REPORT INFORMATION
  Report Type: Spontaneous
  Country: CN (occurrence: CN)
  Receive Date: 20171206
  Receipt Date: 20171206
  Transmission Date: 20180321
  Serious: Yes (Hospitalization)
  Sender: FDA-Public Use
  Company Number: CN-ASTRAZENECA-2017SF23917

PATIENT
  Sex: Female
  Weight: 70 kg

DRUGS (3)
  1. TICAGRELOR. [Suspect]
     Active Substance: TICAGRELOR
     Indication: PLATELET AGGREGATION INHIBITION
     Route: 048
     Dates: start: 20170906, end: 20170925
  2. ASPIRIN. [Suspect]
     Active Substance: ASPIRIN
     Indication: PLATELET AGGREGATION INHIBITION
     Route: 048
     Dates: start: 20170906, end: 20170925
  3. WARFARIN [Suspect]
     Active Substance: WARFARIN
     Indication: PLATELET AGGREGATION INHIBITION
     Route: 048
     Dates: start: 20170906, end: 20170925

REACTIONS (2)
  - Coagulation time prolonged [Recovered/Resolved]
  - Haematoma [Recovered/Resolved]
